FAERS Safety Report 5615011-8 (Version None)
Quarter: 2008Q1

REPORT INFORMATION
  Report Type: 
  Country: None (occurrence: None)
  Receive Date: 20080206
  Receipt Date: 20080129
  Transmission Date: 20080703
  Serious: Yes (Other)
  Sender: FDA-Public Use
  Company Number: PHEH2006US09623

PATIENT
  Age: 73 Year
  Sex: Male
  Weight: 72.562 kg

DRUGS (4)
  1. ZOMETA [Suspect]
     Indication: BREAST CANCER METASTATIC
  2. AREDIA [Suspect]
     Indication: BREAST CANCER METASTATIC
  3. PROCARDIA [Concomitant]
     Indication: AORTIC VALVE INCOMPETENCE
  4. ZOCOR [Concomitant]
     Indication: BLOOD CHOLESTEROL

REACTIONS (18)
  - ACTINOMYCOSIS [None]
  - ALPHA HAEMOLYTIC STREPTOCOCCAL INFECTION [None]
  - ANXIETY [None]
  - AORTIC VALVE STENOSIS [None]
  - DEBRIDEMENT [None]
  - INFLAMMATION [None]
  - INJURY [None]
  - OESOPHAGEAL ULCER [None]
  - OESOPHAGITIS [None]
  - ORAL DISCHARGE [None]
  - ORAL DISCOMFORT [None]
  - OSTEOMYELITIS [None]
  - OSTEONECROSIS [None]
  - PAIN [None]
  - SURGERY [None]
  - THROMBOCYTOPENIA [None]
  - TOOTH EXTRACTION [None]
  - WOUND [None]
